FAERS Safety Report 6263798-6 (Version None)
Quarter: 2009Q3

REPORT INFORMATION
  Report Type: 
  Country: None (occurrence: None)
  Receive Date: 20090710
  Receipt Date: 20090707
  Transmission Date: 20100115
  Serious: Yes (Life-Threatening, Other)
  Sender: FDA-Public Use
  Company Number: PHHY2009BR27772

PATIENT
  Sex: Female
  Weight: 77 kg

DRUGS (1)
  1. DIOVAN [Suspect]
     Indication: HYPERTENSION
     Dosage: 160 MG, BID
     Route: 048

REACTIONS (5)
  - FEELING ABNORMAL [None]
  - HYPERGLYCAEMIA [None]
  - NERVOUSNESS [None]
  - SOMNOLENCE [None]
  - VISUAL ACUITY REDUCED [None]
